FAERS Safety Report 5114113-2 (Version None)
Quarter: 2006Q3

REPORT INFORMATION
  Report Type: 
  Country: None (occurrence: None)
  Receive Date: 20060925
  Receipt Date: 20060921
  Transmission Date: 20061208
  Serious: Yes (Death, Hospitalization)
  Sender: FDA-Public Use
  Company Number: 463019

PATIENT
  Age: 69 Year
  Sex: Female

DRUGS (10)
  1. CARVEDILOL [Suspect]
     Route: 048
     Dates: start: 20040412
  2. TORSEMIDE [Suspect]
     Route: 048
  3. TANATRIL [Suspect]
     Indication: CARDIAC FAILURE
     Dosage: 2.5MG PER DAY
     Route: 048
     Dates: start: 20040812, end: 20050502
  4. LASIX [Suspect]
     Dosage: 20MG PER DAY
     Route: 048
  5. WARFARIN SODIUM [Concomitant]
     Dates: start: 20040412
  6. BLOPRESS [Concomitant]
     Dates: start: 20040316
  7. ALDACTONE-A [Concomitant]
     Dates: start: 20040715, end: 20040728
  8. RENIVACE [Concomitant]
     Dates: start: 20040729, end: 20040811
  9. NORVASC [Concomitant]
     Dates: start: 20040916, end: 20041013
  10. CARDENALIN [Concomitant]

REACTIONS (10)
  - ANGIOPATHY [None]
  - BLOOD PRESSURE INCREASED [None]
  - BRADYCARDIA [None]
  - CARDIOMEGALY [None]
  - DIZZINESS [None]
  - HYPOKALAEMIA [None]
  - MALAISE [None]
  - NOCTURNAL DYSPNOEA [None]
  - SUDDEN DEATH [None]
  - SYNCOPE [None]
